FAERS Safety Report 5861073-2 (Version None)
Quarter: 2008Q3

REPORT INFORMATION
  Report Type: 
  Country: None (occurrence: None)
  Receive Date: 20080827
  Receipt Date: 20080820
  Transmission Date: 20090109
  Serious: Yes (Other)
  Sender: FDA-Public Use
  Company Number: GB-ABBOTT-08P-167-0471913-00

PATIENT
  Sex: Female
  Weight: 77 kg

DRUGS (3)
  1. HUMIRA [Suspect]
     Indication: RHEUMATOID ARTHRITIS
     Route: 058
     Dates: start: 20050713, end: 20070219
  2. CHLOR [Concomitant]
     Indication: RHEUMATOID ARTHRITIS
     Dates: start: 20070301
  3. OTHER BIOLOGIC [Concomitant]
     Indication: RHEUMATOID ARTHRITIS
     Dates: start: 20070301

REACTIONS (1)
  - OVARIAN NEOPLASM [None]
